FAERS Safety Report 21709132 (Version 3)
Quarter: 2024Q1

REPORT INFORMATION
  Report Type: Spontaneous
  Country: FR (occurrence: FR)
  Receive Date: 20221210
  Receipt Date: 20240328
  Transmission Date: 20240410
  Serious: Yes (Other)
  Sender: FDA-Public Use
  Company Number: None

PATIENT
  Age: 54 Year
  Sex: Male

DRUGS (20)
  1. MITOMYCIN [Suspect]
     Active Substance: MITOMYCIN
     Indication: Transitional cell carcinoma
     Dates: start: 202203, end: 202206
  2. ALLOPURINOL [Suspect]
     Active Substance: ALLOPURINOL
     Indication: Gouty arthritis
     Dosage: 200 MG PER DAY - LONG-TERM TREATMENT
  3. PANTOPRAZOLE [Suspect]
     Active Substance: PANTOPRAZOLE
     Indication: Product used for unknown indication
     Dosage: 20 MG PER DAY - LONG-TERM TREATMENT
  4. NEORAL [Suspect]
     Active Substance: CYCLOSPORINE
     Indication: Prophylaxis against transplant rejection
     Dosage: 90 MG IN THE MORNING AND 75 MG IN THE EVENING - LONG-TERM TREATMENT
  5. VALGANCICLOVIR HYDROCHLORIDE [Suspect]
     Active Substance: VALGANCICLOVIR HYDROCHLORIDE
     Indication: Prophylaxis
     Dosage: STRENGTH: 450 MG, 450 MG PER DAY - LONG-TERM TREATMENT
  6. TOZINAMERAN [Suspect]
     Active Substance: TOZINAMERAN
     Indication: COVID-19 immunisation
     Dosage: DISPERSION TO BE DILUTED FOR INJECTION, COVID-19 MRNA?VACCINE (NUCLEOSIDE MODIFIED), R1
     Dates: start: 202104, end: 202104
  7. FILGRASTIM [Suspect]
     Active Substance: FILGRASTIM
     Indication: Transitional cell carcinoma
     Dosage: STRENGTH: 48 MU/0.5 ML, SOLUTION FOR INJECTION OR INFUSION IN PRE-FILLED SYRINGE
  8. CILGAVIMAB\TIXAGEVIMAB [Concomitant]
     Active Substance: CILGAVIMAB\TIXAGEVIMAB
     Indication: COVID-19
     Dates: start: 20220530, end: 20220530
  9. CERTICAN [Concomitant]
     Active Substance: EVEROLIMUS
     Dosage: 0.75 MG MORNING AND 0.75 MG EVENING TARGET (5-7 NG/ML)
  10. IRBESARTAN [Concomitant]
     Active Substance: IRBESARTAN
     Dosage: 150 MG IN THE MORNING
  11. MAGNE B6 [Concomitant]
     Active Substance: MAGNESIUM\PYRIDOXINE
     Indication: Mineral supplementation
     Dosage: 1 TABLET X 2 PER DAY - LONG-TERM TREATMENT
  12. METHOXY POLYETHYLENE GLYCOL-EPOETIN BETA [Concomitant]
     Active Substance: METHOXY POLYETHYLENE GLYCOL-EPOETIN BETA
     Dosage: 75MG IN A MONTH
  13. CALCIUM CARBONATE [Concomitant]
     Active Substance: CALCIUM CARBONATE
     Dosage: 500MG IN ADAY
  14. ATOVAQUONE [Concomitant]
     Active Substance: ATOVAQUONE
  15. MIANSERIN [Concomitant]
     Active Substance: MIANSERIN
     Dosage: 1 TABLET IN THE EVENING
  16. THIAMINE HYDROCHLORIDE [Concomitant]
     Active Substance: THIAMINE HYDROCHLORIDE
     Dosage: 1 TABLET IN THE MORNING
  17. INFLUENZA VIRUS VACCINE [Concomitant]
     Active Substance: INFLUENZA VIRUS VACCINE
     Dates: start: 2021
  18. LOPERAMIDE [Concomitant]
     Active Substance: LOPERAMIDE
     Dosage: 1 CAPSULE MORNING, NOON AND EVENING AND THEN AT EACH
  19. PREDNISONE [Concomitant]
     Active Substance: PREDNISONE
  20. INNOHEP [Concomitant]
     Active Substance: TINZAPARIN SODIUM
     Dosage: 14000IU

REACTIONS (1)
  - Neuropathy peripheral [Recovering/Resolving]

NARRATIVE: CASE EVENT DATE: 20220401
